FAERS Safety Report 5469918-5 (Version None)
Quarter: 2007Q3

REPORT INFORMATION
  Report Type: 
  Country: None (occurrence: None)
  Receive Date: 20070927
  Receipt Date: 20070920
  Transmission Date: 20080115
  Serious: Yes (Hospitalization)
  Sender: FDA-Public Use
  Company Number: US-ELI_LILLY_AND_COMPANY-US200707003813

PATIENT
  Age: 83 Year
  Sex: Female

DRUGS (12)
  1. HYDROCHLOROTHIAZIDE [Concomitant]
     Dosage: 25 MG, DAILY (1/D)
  2. SYNTHROID [Concomitant]
     Dosage: 75 UG, DAILY (1/D)
  3. LIPITOR [Concomitant]
     Dosage: 20 MG, DAILY (1/D)
  4. ECOTRIN [Concomitant]
     Dosage: 81 MG, DAILY (1/D)
  5. CALCIUM [Concomitant]
     Dosage: UNK, UNKNOWN
     Route: 065
  6. MAGNESIUM SULFATE [Concomitant]
     Dosage: UNK, UNKNOWN
     Route: 065
  7. BYETTA [Suspect]
     Indication: TYPE 2 DIABETES MELLITUS
     Dosage: 5 UG, 2/D
     Route: 058
     Dates: start: 20050101, end: 20050101
  8. BYETTA [Suspect]
     Dosage: 10 UG, 2/D
     Route: 058
     Dates: start: 20050101, end: 20070531
  9. BYETTA [Suspect]
     Dosage: 10 UG, 2/D
     Route: 058
     Dates: start: 20070604
  10. ACTOS [Concomitant]
     Indication: DIABETES MELLITUS
     Dosage: 1 UNK, DAILY (1/D)
     Route: 048
  11. PRANDIN /USA/ [Concomitant]
     Indication: DIABETES MELLITUS
     Dosage: 2 MG, 2/D
     Route: 048
  12. PRANDIN /USA/ [Concomitant]
     Dosage: 90 MG, EACH EVENING
     Route: 048

REACTIONS (3)
  - ASTHENIA [None]
  - COLITIS [None]
  - NAUSEA [None]
